FAERS Safety Report 13116834 (Version 1)
Quarter: 2017Q1

REPORT INFORMATION
  Report Type: Spontaneous
  Country: US (occurrence: US)
  Receive Date: 20170116
  Receipt Date: 20170116
  Transmission Date: 20170428
  Serious: No
  Sender: FDA-Public Use
  Company Number: US-PFIZER INC-2017017242

PATIENT
  Sex: Male
  Weight: 76 kg

DRUGS (11)
  1. LYRICA [Suspect]
     Active Substance: PREGABALIN
     Indication: SPINAL CORD INJURY
  2. RANITIDINE HCL [Concomitant]
     Active Substance: RANITIDINE HYDROCHLORIDE
     Indication: GASTROOESOPHAGEAL REFLUX DISEASE
     Dosage: 150 MG, TWICE A DAY
  3. LYRICA [Suspect]
     Active Substance: PREGABALIN
     Indication: NEUROPATHY PERIPHERAL
     Dosage: 200 MG, DAILY
  4. VENTOLIN HFA [Concomitant]
     Active Substance: ALBUTEROL SULFATE
     Indication: DYSPNOEA
     Dosage: 2 DF, AS NEEDED
  5. LYRICA [Suspect]
     Active Substance: PREGABALIN
     Indication: NEURALGIA
     Dosage: 225 MG, TWICE A DAY
  6. PANTOPRAZOLE [Concomitant]
     Active Substance: PANTOPRAZOLE SODIUM
     Indication: GASTROOESOPHAGEAL REFLUX DISEASE
     Dosage: 40 MG, ONCE A DAY (IN THE MORNING)
     Route: 048
  7. VENTOLIN HFA [Concomitant]
     Active Substance: ALBUTEROL SULFATE
     Indication: WHEEZING
  8. LISINOPRIL. [Concomitant]
     Active Substance: LISINOPRIL
     Indication: BLOOD PRESSURE MEASUREMENT
     Dosage: 5 MG, ONCE A DAY AT BEDTIME
     Route: 048
     Dates: start: 201609
  9. AMITRIPTYLINE HCL [Concomitant]
     Active Substance: AMITRIPTYLINE
     Indication: SLEEP DISORDER
     Dosage: 50MG (ONE OR 1/2 TABLET AT BEDTIME, AS NEEDED)
  10. AMITRIPTYLINE HCL [Concomitant]
     Active Substance: AMITRIPTYLINE
     Indication: PAIN IN EXTREMITY
  11. LYRICA [Suspect]
     Active Substance: PREGABALIN
     Indication: FIBROMYALGIA
     Dosage: 600 MG, DAILY

REACTIONS (6)
  - Drug effect incomplete [Unknown]
  - Chest discomfort [Recovering/Resolving]
  - Influenza like illness [Recovering/Resolving]
  - Headache [Recovering/Resolving]
  - Throat irritation [Recovering/Resolving]
  - Cough [Recovering/Resolving]

NARRATIVE: CASE EVENT DATE: 2015
